FAERS Safety Report 6876787-5 (Version None)
Quarter: 2010Q2

REPORT INFORMATION
  Report Type: 
  Country: None (occurrence: None)
  Receive Date: 20100616
  Receipt Date: 20100429
  Transmission Date: 20101027
  Serious: No
  Sender: FDA-Public Use
  Company Number: DSA_43074_2010

PATIENT
  Sex: Male

DRUGS (3)
  1. XENAZINE [Suspect]
     Indication: TREMOR
     Dosage: 12.5 MG QD ORAL
     Route: 048
     Dates: start: 20100301, end: 20100421
  2. WELLBUTRIN [Concomitant]
  3. VITAMIN TAB [Concomitant]

REACTIONS (1)
  - TIC [None]
